FAERS Safety Report 9438522 (Version 1)
Quarter: 2013Q3

REPORT INFORMATION
  Report Type: Spontaneous
  Country: CL (occurrence: CL)
  Receive Date: 20130802
  Receipt Date: 20130802
  Transmission Date: 20140515
  Serious: Yes (Hospitalization, Other)
  Sender: FDA-Public Use
  Company Number: CL-GLAXOSMITHKLINE-A1028171A

PATIENT
  Sex: Female

DRUGS (1)
  1. WELLBUTRIN SR [Suspect]
     Indication: DEPRESSION
     Dosage: 150MG PER DAY
     Route: 048
     Dates: start: 20130603, end: 20130605

REACTIONS (3)
  - Complex partial seizures [Recovered/Resolved]
  - Partial seizures with secondary generalisation [Unknown]
  - Postictal state [Recovered/Resolved]
